FAERS Safety Report 16710070 (Version 1)
Quarter: 2019Q4

REPORT INFORMATION
  Report Type: Spontaneous
  Country: US (occurrence: US)
  Receive Date: 20190815
  Receipt Date: 20190815
  Transmission Date: 20200122
  Serious: No
  Sender: FDA-Public Use
  Company Number: None

PATIENT
  Age: 70 Year
  Sex: Female
  Weight: 121.5 kg

DRUGS (11)
  1. LDN, LOW DOSE NALTREXONE [Suspect]
     Active Substance: NALTREXONE
     Indication: DEPRESSION
     Dosage: ?          QUANTITY:1 DOSE VARIED;?
     Route: 048
     Dates: start: 20190513, end: 20190811
  2. VITAMIN C WHEN SICK [Concomitant]
  3. FAMOTIDINE. [Concomitant]
     Active Substance: FAMOTIDINE
  4. LDN, LOW DOSE NALTREXONE [Suspect]
     Active Substance: NALTREXONE
     Indication: INSOMNIA
     Dosage: ?          QUANTITY:1 DOSE VARIED;?
     Route: 048
     Dates: start: 20190513, end: 20190811
  5. VITAMIN D3 DAILY [Concomitant]
  6. BENADRYL [Concomitant]
     Active Substance: DIPHENHYDRAMINE HYDROCHLORIDE
  7. LDN LOW DOSE NALTREXONE [Suspect]
     Active Substance: NALTREXONE
     Indication: FIBROMYALGIA
     Dosage: ?          QUANTITY:1 VARIED DOSES;?
     Route: 048
     Dates: start: 20190620, end: 20190811
  8. LDN LOW DOSE NALTREXONE [Suspect]
     Active Substance: NALTREXONE
     Indication: DEPRESSION
     Dosage: ?          QUANTITY:1 VARIED DOSES;?
     Route: 048
     Dates: start: 20190620, end: 20190811
  9. MAGNESIUM-^NATURAL CALM^ EACH NIGHT [Concomitant]
  10. LDN, LOW DOSE NALTREXONE [Suspect]
     Active Substance: NALTREXONE
     Indication: FIBROMYALGIA
     Dosage: ?          QUANTITY:1 DOSE VARIED;?
     Route: 048
     Dates: start: 20190513, end: 20190811
  11. LDN LOW DOSE NALTREXONE [Suspect]
     Active Substance: NALTREXONE
     Indication: INSOMNIA
     Dosage: ?          QUANTITY:1 VARIED DOSES;?
     Route: 048
     Dates: start: 20190620, end: 20190811

REACTIONS (5)
  - Rash papular [None]
  - Adverse drug reaction [None]
  - Cough [None]
  - Dyspnoea [None]
  - Rash erythematous [None]

NARRATIVE: CASE EVENT DATE: 20190725
